FAERS Safety Report 7730354-X (Version None)
Quarter: 2011Q3

REPORT INFORMATION
  Report Type: 
  Country: None (occurrence: None)
  Receive Date: 20110906
  Receipt Date: 20110601
  Transmission Date: 20111222
  Serious: No
  Sender: FDA-Public Use
  Company Number: US-GLAXOSMITHKLINE-A0929880A

PATIENT
  Age: 69 Year
  Sex: Female

DRUGS (5)
  1. RESTORIL [Concomitant]
  2. LAMICTAL [Suspect]
     Indication: DEPRESSION
     Dosage: 12.5MG PER DAY
     Route: 048
     Dates: start: 20110401, end: 20110527
  3. WELLBUTRIN [Suspect]
     Indication: DEPRESSION
     Route: 048
  4. ASPIRIN [Concomitant]
  5. VITAMIN TAB [Concomitant]

REACTIONS (12)
  - DEPRESSION [None]
  - PALPITATIONS [None]
  - DYSGEUSIA [None]
  - ARTHRALGIA [None]
  - FEELING ABNORMAL [None]
  - CONDITION AGGRAVATED [None]
  - DIPLOPIA [None]
  - FLUSHING [None]
  - HEADACHE [None]
  - CRYING [None]
  - HYPOAESTHESIA [None]
  - INSOMNIA [None]
